FAERS Safety Report 23750988 (Version 4)
Quarter: 2024Q3

REPORT INFORMATION
  Report Type: Spontaneous
  Country: PL (occurrence: PL)
  Receive Date: 20240417
  Receipt Date: 20240821
  Transmission Date: 20241016
  Serious: Yes (Other)
  Sender: AUROBINDO
  Company Number: PL-EMA-DD-20240401-7482827-170435

PATIENT
  Age: 55 Year
  Sex: Female

DRUGS (5)
  1. LETROZOLE [Suspect]
     Active Substance: LETROZOLE
     Indication: Invasive breast carcinoma
     Dosage: UNK
     Route: 065
  2. DOXORUBICIN [Suspect]
     Active Substance: DOXORUBICIN
     Indication: Invasive breast carcinoma
     Dosage: 50 MILLIGRAM/SQ. METER (6 AT REGIMEN 50 MG/M2, EVERY 3 WEEKS)
     Route: 065
  3. DOXORUBICIN [Suspect]
     Active Substance: DOXORUBICIN
     Dosage: 60 MG/M2, 4 CYCLE EVERY 3 WEEKS
     Route: 065
  4. DOCETAXEL [Suspect]
     Active Substance: DOCETAXEL\DOCETAXEL ANHYDROUS
     Indication: Invasive breast carcinoma
     Dosage: 75 MILLIGRAM/SQ. METER (6 AT REGIMEN 75 MG/M2, EVERY 3 WEEKS)
     Route: 065
  5. CYCLOPHOSPHAMIDE [Suspect]
     Active Substance: CYCLOPHOSPHAMIDE
     Indication: Product used for unknown indication
     Dosage: 600 MG/M2 (4 CYCLE EVERY 3 WEEKS)
     Route: 065

REACTIONS (4)
  - Post thrombotic syndrome [Unknown]
  - Deep vein thrombosis [Unknown]
  - Infection [Unknown]
  - Lymphoedema [Unknown]
